FAERS Safety Report 24713563 (Version 7)
Quarter: 2025Q4

REPORT INFORMATION
  Report Type: Spontaneous
  Country: US (occurrence: US)
  Receive Date: 20241209
  Receipt Date: 20251001
  Transmission Date: 20260117
  Serious: Yes (Other)
  Sender: SANOFI AVENTIS
  Company Number: US-SA-2024SA360229

PATIENT
  Age: 17 Year
  Sex: Female

DRUGS (3)
  1. DUPIXENT [Suspect]
     Active Substance: DUPILUMAB
     Indication: Eczema
     Dosage: 400 MG, 1X
     Route: 058
     Dates: start: 20240731, end: 20240731
  2. DUPIXENT [Suspect]
     Active Substance: DUPILUMAB
     Dosage: 200 MG, QOW
     Route: 058
     Dates: start: 202408
  3. DUPIXENT [Suspect]
     Active Substance: DUPILUMAB
     Dosage: 200 MG, QOW
     Route: 058

REACTIONS (14)
  - Haematochezia [Unknown]
  - Rebound eczema [Unknown]
  - Product dose omission issue [Unknown]
  - Rash pruritic [Unknown]
  - Erythema [Unknown]
  - Gastrointestinal infection [Unknown]
  - Abdominal pain upper [Unknown]
  - Mood altered [Unknown]
  - Stress [Unknown]
  - Condition aggravated [Unknown]
  - Sleep disorder due to a general medical condition [Not Recovered/Not Resolved]
  - Musculoskeletal chest pain [Unknown]
  - Eczema [Not Recovered/Not Resolved]
  - Pruritus [Not Recovered/Not Resolved]

NARRATIVE: CASE EVENT DATE: 20240101
